FAERS Safety Report 22330501 (Version 1)
Quarter: 2023Q2

REPORT INFORMATION
  Report Type: Report from Study
  Country: CN (occurrence: CN)
  Receive Date: 20230517
  Receipt Date: 20230517
  Transmission Date: 20230721
  Serious: Yes (Hospitalization)
  Sender: FDA-Public Use
  Company Number: CN-BEIGENE-BGN-2023-002780

PATIENT
  Age: 54 Year
  Sex: Female
  Weight: 54 kg

DRUGS (37)
  1. PACLITAXEL [Suspect]
     Active Substance: PACLITAXEL
     Indication: Cervix carcinoma
     Dosage: 210 MG, QD
     Route: 042
     Dates: start: 20220620
  2. PACLITAXEL [Suspect]
     Active Substance: PACLITAXEL
     Dosage: 210 MG, QD, C2D1
     Route: 042
     Dates: start: 20220721
  3. PACLITAXEL [Suspect]
     Active Substance: PACLITAXEL
     Dosage: 210 MG, QD, C3D1
     Route: 042
     Dates: start: 20220810
  4. PACLITAXEL [Suspect]
     Active Substance: PACLITAXEL
     Dosage: 210 MG, QD, C4D1
     Route: 042
     Dates: start: 20220831
  5. PACLITAXEL [Suspect]
     Active Substance: PACLITAXEL
     Dosage: 240 MG, QD, C5D1
     Route: 042
     Dates: start: 20220921
  6. PACLITAXEL [Suspect]
     Active Substance: PACLITAXEL
     Dosage: 240 MG, QD, C6D1
     Route: 042
     Dates: start: 20221014
  7. PACLITAXEL [Suspect]
     Active Substance: PACLITAXEL
     Dosage: 240 MG, QD, C11D1
     Route: 042
     Dates: start: 20230204
  8. PACLITAXEL [Suspect]
     Active Substance: PACLITAXEL
     Dosage: 240 MG, QD, C12D1
     Route: 042
     Dates: start: 20230224
  9. PACLITAXEL [Suspect]
     Active Substance: PACLITAXEL
     Dosage: 240 MG, QD, C13D1
     Route: 042
     Dates: start: 20230317
  10. TISLELIZUMAB [Suspect]
     Active Substance: TISLELIZUMAB
     Indication: Cervix carcinoma
     Dosage: 200 MG, QD
     Route: 042
     Dates: start: 20220620
  11. TISLELIZUMAB [Suspect]
     Active Substance: TISLELIZUMAB
     Dosage: 200 MG, QD, C2D1 VISIT
     Route: 042
     Dates: start: 20220721
  12. TISLELIZUMAB [Suspect]
     Active Substance: TISLELIZUMAB
     Dosage: 200 MG, QD, C3D1
     Route: 042
     Dates: start: 20220810
  13. TISLELIZUMAB [Suspect]
     Active Substance: TISLELIZUMAB
     Dosage: 200 MG, QD, C4D1
     Route: 042
     Dates: start: 20220831
  14. TISLELIZUMAB [Suspect]
     Active Substance: TISLELIZUMAB
     Dosage: 200 MG, QD, C5D1
     Route: 042
     Dates: start: 20220921
  15. TISLELIZUMAB [Suspect]
     Active Substance: TISLELIZUMAB
     Dosage: 200 MG, QD, C6D1
     Route: 042
     Dates: start: 20221014
  16. TISLELIZUMAB [Suspect]
     Active Substance: TISLELIZUMAB
     Dosage: 200 MG, QD, C7D1
     Route: 042
     Dates: start: 20221104
  17. TISLELIZUMAB [Suspect]
     Active Substance: TISLELIZUMAB
     Dosage: 200 MG, QD, C8D1
     Route: 042
     Dates: start: 20221125
  18. TISLELIZUMAB [Suspect]
     Active Substance: TISLELIZUMAB
     Dosage: 200 MG, QD, C9D1
     Route: 042
     Dates: start: 20221222
  19. TISLELIZUMAB [Suspect]
     Active Substance: TISLELIZUMAB
     Dosage: 200 MG, QD, C10D1
     Route: 042
     Dates: start: 20230111
  20. TISLELIZUMAB [Suspect]
     Active Substance: TISLELIZUMAB
     Dosage: 200 MG, QD, C11D1
     Route: 042
     Dates: start: 20230204
  21. TISLELIZUMAB [Suspect]
     Active Substance: TISLELIZUMAB
     Dosage: 200 MG, QD, C12D1
     Route: 042
     Dates: start: 20230224
  22. TISLELIZUMAB [Suspect]
     Active Substance: TISLELIZUMAB
     Dosage: 200 MG, QD, C13D1
     Route: 042
     Dates: start: 20230317
  23. TISLELIZUMAB [Suspect]
     Active Substance: TISLELIZUMAB
     Dosage: 200 MG, QD, C14D1
     Route: 042
     Dates: start: 20230417
  24. BEVACIZUMAB [Suspect]
     Active Substance: BEVACIZUMAB
     Indication: Cervix carcinoma
     Dosage: 408.75 MG, QD
     Route: 042
     Dates: start: 20220620
  25. BEVACIZUMAB [Suspect]
     Active Substance: BEVACIZUMAB
     Dosage: 393.75 MG, QD, C3D1
     Route: 042
     Dates: start: 20220810
  26. BEVACIZUMAB [Suspect]
     Active Substance: BEVACIZUMAB
     Dosage: 393.75 MG, QD, C4D1
     Route: 042
     Dates: start: 20220831
  27. BEVACIZUMAB [Suspect]
     Active Substance: BEVACIZUMAB
     Dosage: 393.7 MG, QD, C5D1
     Route: 042
     Dates: start: 20220921
  28. BEVACIZUMAB [Suspect]
     Active Substance: BEVACIZUMAB
     Dosage: 405 MG, QD, C6D1
     Route: 042
     Dates: start: 20221014
  29. BEVACIZUMAB [Suspect]
     Active Substance: BEVACIZUMAB
     Dosage: 412.5 MG, QD, C7D1
     Route: 042
     Dates: start: 20221104
  30. BEVACIZUMAB [Suspect]
     Active Substance: BEVACIZUMAB
     Dosage: 405 MG, QD, C8D1
     Route: 042
     Dates: start: 20221125
  31. BEVACIZUMAB [Suspect]
     Active Substance: BEVACIZUMAB
     Dosage: 405 MG, QD, C9D1
     Route: 042
     Dates: start: 20221222
  32. BEVACIZUMAB [Suspect]
     Active Substance: BEVACIZUMAB
     Dosage: 401.25 MG, QD,C10D1
     Route: 042
     Dates: start: 20230111
  33. BEVACIZUMAB [Suspect]
     Active Substance: BEVACIZUMAB
     Dosage: 405 MG, QD, C11D1
     Route: 042
     Dates: start: 20230204
  34. BEVACIZUMAB [Suspect]
     Active Substance: BEVACIZUMAB
     Dosage: 405 MG, QD, C12D1
     Route: 042
     Dates: start: 20230224
  35. BEVACIZUMAB [Suspect]
     Active Substance: BEVACIZUMAB
     Dosage: 405 MG, QD, C13D1
     Route: 042
     Dates: start: 20230317
  36. BEVACIZUMAB [Suspect]
     Active Substance: BEVACIZUMAB
     Dosage: 405 MG, QD, C14D1
     Route: 042
     Dates: start: 20230417
  37. LEVOTHYROXINE SODIUM [Concomitant]
     Active Substance: LEVOTHYROXINE SODIUM
     Indication: Hypothyroidism
     Dosage: 50 MICROGRAM, QD
     Route: 065

REACTIONS (1)
  - Henoch-Schonlein purpura [Recovered/Resolved]

NARRATIVE: CASE EVENT DATE: 20230401
